FAERS Safety Report 13099784 (Version 1)
Quarter: 2017Q1

REPORT INFORMATION
  Report Type: Spontaneous
  Country: SE (occurrence: SE)
  Receive Date: 20170110
  Receipt Date: 20170110
  Transmission Date: 20170428
  Serious: Yes (Other)
  Sender: FDA-Public Use
  Company Number: SE-BRISTOL-MYERS SQUIBB COMPANY-BMS-2017-000501

PATIENT
  Age: 70 Year
  Sex: Male

DRUGS (3)
  1. OPDIVO [Suspect]
     Active Substance: NIVOLUMAB
     Indication: MALIGNANT MELANOMA
     Dosage: AS PER SPC
     Route: 065
     Dates: start: 2016
  2. ZOPIKLON [Concomitant]
     Active Substance: ZOPICLONE
     Indication: PRODUCT USED FOR UNKNOWN INDICATION
     Dosage: UNK, PRN
     Route: 065
  3. OPATANOL [Concomitant]
     Active Substance: OLOPATADINE
     Indication: DRY EYE
     Route: 065

REACTIONS (2)
  - Blood pressure increased [Unknown]
  - Arrhythmia supraventricular [Unknown]
